FAERS Safety Report 6215320-8 (Version None)
Quarter: 2009Q2

REPORT INFORMATION
  Report Type: 
  Country: None (occurrence: None)
  Receive Date: 20090604
  Receipt Date: 20090528
  Transmission Date: 20091009
  Serious: Yes (Other)
  Sender: FDA-Public Use
  Company Number: PHHY2009DE03773

PATIENT
  Sex: Male
  Weight: 23 kg

DRUGS (3)
  1. MYFORTIC [Suspect]
     Indication: HEART TRANSPLANT
     Dosage: 180 MG, TID
     Route: 048
     Dates: start: 20060221, end: 20060403
  2. AZATHIOPRINE [Suspect]
     Indication: HEART TRANSPLANT
     Dosage: UNK
     Dates: end: 20061001
  3. TACROLIMUS [Concomitant]
     Indication: HEART TRANSPLANT
     Dosage: 1.5 MG, BID
     Route: 048
     Dates: start: 20050501, end: 20060403

REACTIONS (3)
  - AGRANULOCYTOSIS [None]
  - GRANULOCYTE COUNT DECREASED [None]
  - LEUKOPENIA [None]
